FAERS Safety Report 9801221 (Version 2)
Quarter: 2014Q1

REPORT INFORMATION
  Report Type: Spontaneous
  Country: US (occurrence: US)
  Receive Date: 20140107
  Receipt Date: 20140206
  Transmission Date: 20141002
  Serious: No
  Sender: FDA-Public Use
  Company Number: US-TEVA-454431USA

PATIENT
  Age: 46 Year
  Sex: Female
  Weight: 59.02 kg

DRUGS (5)
  1. ACTIQ [Suspect]
     Indication: BREAKTHROUGH PAIN
     Route: 048
  2. ACTIQ [Suspect]
     Route: 048
  3. DURAGESIC [Concomitant]
     Indication: PAIN MANAGEMENT
  4. NEURONTIN [Concomitant]
     Indication: NERVE INJURY
  5. BACLOFEN [Concomitant]
     Indication: MUSCLE SPASMS

REACTIONS (8)
  - Muscle spasms [Unknown]
  - Inflammatory pain [Recovered/Resolved]
  - Burning sensation [Recovered/Resolved]
  - Pain [Unknown]
  - Urinary tract infection [Recovered/Resolved]
  - Cystitis [Recovered/Resolved]
  - Haematuria [Recovered/Resolved]
  - Urine abnormality [Recovered/Resolved]
